FAERS Safety Report 16353072 (Version 2)
Quarter: 2019Q3

REPORT INFORMATION
  Report Type: Spontaneous
  Country: US (occurrence: US)
  Receive Date: 20190524
  Receipt Date: 20190719
  Transmission Date: 20191004
  Serious: No
  Sender: FDA-Public Use
  Company Number: US-ASTRAZENECA-2019SE65657

PATIENT
  Sex: Male
  Weight: 74.8 kg

DRUGS (3)
  1. SYMBICORT [Suspect]
     Active Substance: BUDESONIDE\FORMOTEROL FUMARATE DIHYDRATE
     Indication: PULMONARY CONGESTION
     Dosage: 80/4.5 MCG, TWO PUFFS TWICE A DAY
     Route: 055
     Dates: start: 201304
  2. SYMBICORT [Suspect]
     Active Substance: BUDESONIDE\FORMOTEROL FUMARATE DIHYDRATE
     Indication: COUGH
     Dosage: 80/4.5 MCG, TWO PUFFS TWICE A DAY
     Route: 055
     Dates: start: 201304
  3. SYMBICORT [Suspect]
     Active Substance: BUDESONIDE\FORMOTEROL FUMARATE DIHYDRATE
     Indication: ASTHMA
     Dosage: 80/4.5 MCG, TWO PUFFS TWICE A DAY
     Route: 055
     Dates: start: 201304

REACTIONS (4)
  - Lower respiratory tract congestion [Recovered/Resolved]
  - Cough [Recovered/Resolved]
  - Intentional device misuse [Recovered/Resolved]
  - Drug ineffective [Unknown]
